FAERS Safety Report 15549896 (Version 2)
Quarter: 2018Q4

REPORT INFORMATION
  Report Type: Report from Study
  Country: MX (occurrence: MX)
  Receive Date: 20181025
  Receipt Date: 20181026
  Transmission Date: 20190205
  Serious: Yes (Life-Threatening, Other)
  Sender: FDA-Public Use
  Company Number: PHHY2018MX134839

PATIENT
  Sex: Male
  Weight: 80 kg

DRUGS (10)
  1. CALCIUM CARBONATE. [Concomitant]
     Active Substance: CALCIUM CARBONATE
     Indication: MINERAL SUPPLEMENTATION
     Dosage: 1 DF, QD (2 YEARAS AGO)
     Route: 048
  2. ERYTHROPOIETIN [Concomitant]
     Active Substance: ERYTHROPOIETIN
     Indication: RENAL DISORDER
     Dosage: 1 DF, 3 TIMES PER WEEK (4 YEARS AGO)
     Route: 065
  3. AMLODIPINE [Concomitant]
     Active Substance: AMLODIPINE BESYLATE
     Indication: HYPERTENSION
     Dosage: 2 DF, QD (2 YEARS AGO)
     Route: 048
     Dates: end: 20181019
  4. DIOVAN [Suspect]
     Active Substance: VALSARTAN
     Indication: HYPERTENSION
     Dosage: 320 MG, QD
     Route: 048
     Dates: start: 2009
  5. INSULIN [Concomitant]
     Active Substance: INSULIN NOS
     Indication: DIABETES MELLITUS
     Dosage: 30 U, QD (20 UNITS IN THE MORNING AND 10 UNITS AT NIGHT)
     Route: 059
  6. ELATEC [Concomitant]
     Indication: HYPERTENSION
     Dosage: 2 DF, QD, 6 MONTHS AGO
     Route: 048
     Dates: end: 20181020
  7. ASPIRIN PROTECT [Concomitant]
     Active Substance: ASPIRIN
     Indication: COAGULOPATHY
     Dosage: 1 DF, QD (1 YEAR AGO)
     Route: 048
  8. CONCOR [Concomitant]
     Active Substance: BISOPROLOL FUMARATE
     Indication: HYPERTENSION
  9. CONCOR [Concomitant]
     Active Substance: BISOPROLOL FUMARATE
     Indication: BLOOD PRESSURE ABNORMAL
     Dosage: 1 DF, QD (1/2 IN MORNING AND 1/2 IN NIGHT)
     Route: 048
     Dates: start: 20181020
  10. ATORVASTATIN [Concomitant]
     Active Substance: ATORVASTATIN
     Indication: RENAL DISORDER
     Dosage: 1 DF, QD
     Route: 048
     Dates: start: 20181020

REACTIONS (3)
  - Diabetes mellitus [Unknown]
  - Cardiac failure [Unknown]
  - Renal injury [Unknown]
